FAERS Safety Report 4303544-6 (Version None)
Quarter: 2004Q1

REPORT INFORMATION
  Report Type: 
  Country: None (occurrence: None)
  Receive Date: 20040224
  Receipt Date: 20040224
  Transmission Date: 20041129
  Serious: Yes (Hospitalization)
  Sender: FDA-Public Use
  Company Number: None

PATIENT
  Age: 62 Year
  Sex: Male
  Weight: 107 kg

DRUGS (8)
  1. OXCARBAMAZEPINE [Suspect]
     Indication: BIPOLAR DISORDER
     Dosage: 600 MG TID, 900 MG BID
     Dates: start: 20030925
  2. OXCARBAMAZEPINE [Suspect]
     Indication: SCHIZOAFFECTIVE DISORDER
     Dosage: 600 MG TID, 900 MG BID
     Dates: start: 20030925
  3. HALOPERIDOL [Concomitant]
  4. OLANZAPINE ZYDIS [Concomitant]
  5. BENSTROPINE [Concomitant]
  6. CLONAZEPAM [Concomitant]
  7. DOCCUSATE [Concomitant]
  8. LACTULOSE [Concomitant]

REACTIONS (1)
  - HYPONATRAEMIA [None]
